FAERS Safety Report 5279093-8 (Version None)
Quarter: 2007Q1

REPORT INFORMATION
  Report Type: 
  Country: None (occurrence: None)
  Receive Date: 20070327
  Receipt Date: 20070327
  Transmission Date: 20070707
  Serious: Yes (Other)
  Sender: FDA-Public Use
  Company Number: None

PATIENT
  Age: 77 Year
  Sex: Female
  Weight: 86 kg

DRUGS (21)
  1. MEROPENEM [Suspect]
     Indication: PSEUDOMONAS INFECTION
     Dosage: 1 GRAM  EVERY 8 HOURS  IV
     Route: 042
     Dates: start: 20070312, end: 20070322
  2. TYLENOL [Concomitant]
  3. ADVAIR DISKUS 100/50 [Concomitant]
  4. ASPIRIN [Concomitant]
  5. FUROSEMIDE [Concomitant]
  6. LEVOTHYROXINE SODIUM [Concomitant]
  7. LIPITOR [Concomitant]
  8. METOPROLOL SUCCINATE [Concomitant]
  9. NITROGLYCERIN [Concomitant]
  10. PERCOCET [Concomitant]
  11. OSCAL +D [Concomitant]
  12. PHENYTOIN [Concomitant]
  13. POTASSIUM CHLORIDE [Concomitant]
  14. PRILOSEC [Concomitant]
  15. SENNA [Concomitant]
  16. SPIRIVA [Concomitant]
  17. FLEETS PHOSPHATE [Concomitant]
  18. DUONEBS [Concomitant]
  19. MOM [Concomitant]
  20. LEVAQUIN [Concomitant]
  21. CEFEPIME [Concomitant]

REACTIONS (1)
  - WHITE BLOOD CELL COUNT DECREASED [None]
